FAERS Safety Report 13414225 (Version 1)
Quarter: 2017Q2

REPORT INFORMATION
  Report Type: Spontaneous
  Country: JP (occurrence: JP)
  Receive Date: 20170407
  Receipt Date: 20170407
  Transmission Date: 20170830
  Serious: Yes (Hospitalization)
  Sender: FDA-Public Use
  Company Number: JP-PFIZER INC-2017144705

PATIENT
  Age: 81 Year
  Sex: Male

DRUGS (2)
  1. CARERAM [Suspect]
     Active Substance: IGURATIMOD
     Dosage: UNK
  2. METHOTREXATE SODIUM. [Suspect]
     Active Substance: METHOTREXATE SODIUM
     Dosage: 6 MG, WEEKLY

REACTIONS (3)
  - Pneumonia [Recovered/Resolved]
  - Blood test abnormal [Recovered/Resolved]
  - Anaemia [Recovered/Resolved]
